FAERS Safety Report 7136100-5 (Version None)
Quarter: 2010Q4

REPORT INFORMATION
  Report Type: 
  Country: None (occurrence: None)
  Receive Date: 20101204
  Receipt Date: 20100920
  Transmission Date: 20110411
  Serious: Yes (Hospitalization)
  Sender: FDA-Public Use
  Company Number: US-BAYER-201012830NA

PATIENT

DRUGS (18)
  1. YASMIN [Suspect]
     Indication: ORAL CONTRACEPTION
     Route: 048
     Dates: start: 20071101, end: 20080125
  2. YASMIN [Suspect]
     Indication: ACNE
  3. IBUPROFEN [Concomitant]
     Indication: NECK PAIN
     Dates: start: 20071201, end: 20071201
  4. PREDNISONE [Concomitant]
     Route: 048
     Dates: start: 20080116, end: 20080120
  5. PREDNISONE [Concomitant]
     Indication: NECK PAIN
  6. PREDNISONE [Concomitant]
     Indication: RADICULITIS
  7. NAPROSYN [Concomitant]
     Dosage: 1000 MG (DAILY DOSE), BID, ORAL
     Route: 048
     Dates: start: 20080104, end: 20080128
  8. NAPROSYN [Concomitant]
     Indication: NECK PAIN
  9. NAPROSYN [Concomitant]
  10. SKELAXIN [Concomitant]
     Dosage: UP TO TID
     Route: 048
     Dates: start: 20080104, end: 20080101
  11. SKELAXIN [Concomitant]
     Indication: NECK PAIN
     Dosage: B.I.D. TO T.I.D, STOPPED BETWEEN MAY-AUG-2008
     Route: 048
     Dates: start: 20080211, end: 20080101
  12. SKELAXIN [Concomitant]
     Indication: HEADACHE
  13. VALIUM [Concomitant]
     Dosage: ONE TO TWO TABLETS DAILY , STOPPED BETWEEN MAY-AUG-2008
     Route: 048
     Dates: start: 20080101, end: 20080101
  14. PHENERGAN [Concomitant]
     Dosage: STOPPED BETWEEN MAY-AUG-2008
     Dates: start: 20080201
  15. LORTAB [Concomitant]
     Dates: start: 20080201, end: 20080401
  16. LIDODERM [Concomitant]
     Indication: BACK PAIN
     Dosage: STOPPED BETWEEN MAY-AUG-2008
     Route: 062
     Dates: end: 20080101
  17. SPIRONOLACTONE [Concomitant]
     Dosage: STOPPED BETWEEN MAY-AUG-2008
     Route: 048
     Dates: end: 20080101
  18. ACCUTANE [Concomitant]

REACTIONS (26)
  - BACK PAIN [None]
  - BRONCHIAL HYPERREACTIVITY [None]
  - CONCUSSION [None]
  - DECREASED ACTIVITY [None]
  - DIZZINESS [None]
  - DYSPNOEA [None]
  - GRANULOMA [None]
  - HEAD DISCOMFORT [None]
  - HEADACHE [None]
  - INTERVERTEBRAL DISC PROTRUSION [None]
  - LIMB DISCOMFORT [None]
  - LUNG NEOPLASM [None]
  - MUSCLE STRAIN [None]
  - NAUSEA [None]
  - NECK INJURY [None]
  - PAIN IN EXTREMITY [None]
  - PHOTOPHOBIA [None]
  - PLEURISY [None]
  - PLEURITIC PAIN [None]
  - PULMONARY EMBOLISM [None]
  - PULMONARY INFARCTION [None]
  - RADICULITIS CERVICAL [None]
  - ROAD TRAFFIC ACCIDENT [None]
  - SCAR [None]
  - THERAPEUTIC RESPONSE DECREASED [None]
  - VERTIGO [None]
